FAERS Safety Report 9004522 (Version 7)
Quarter: 2013Q3

REPORT INFORMATION
  Report Type: Spontaneous
  Country: US (occurrence: US)
  Receive Date: 20130108
  Receipt Date: 20130809
  Transmission Date: 20140515
  Serious: Yes (Hospitalization, Disabling, Other)
  Sender: FDA-Public Use
  Company Number: US-009507513-1301USA000978

PATIENT
  Sex: Female
  Weight: 126.53 kg

DRUGS (10)
  1. FOSAMAX [Suspect]
     Indication: OSTEOARTHRITIS
     Dosage: 5 MG, QD
     Route: 048
     Dates: start: 19990910, end: 20010709
  2. FOSAMAX [Suspect]
     Dosage: 70 MG, QW
     Route: 048
     Dates: start: 20010709, end: 20040602
  3. JANUMET [Concomitant]
     Indication: TYPE 2 DIABETES MELLITUS
     Dosage: 50 MG, BID
     Route: 048
  4. HYDROCHLOROTHIAZIDE [Concomitant]
     Indication: HYPERTENSION
     Dosage: UNK
     Dates: end: 20100115
  5. BENICAR [Concomitant]
     Indication: HYPERTENSION
     Dosage: UNK
     Dates: end: 20100115
  6. DIABETA [Concomitant]
     Indication: TYPE 2 DIABETES MELLITUS
     Dosage: UNK
     Dates: start: 199710
  7. AVANDIA [Concomitant]
     Indication: TYPE 2 DIABETES MELLITUS
     Dosage: UNK
     Dates: start: 200011
  8. OXYCONTIN [Concomitant]
     Indication: PAIN
     Dosage: UNK
     Dates: start: 200009
  9. ACCUPRIL [Concomitant]
     Indication: HYPERTENSION
     Dosage: UNK
     Dates: start: 199211
  10. LISINOPRIL [Concomitant]
     Indication: HYPERTENSION
     Dosage: 5 MG, QD

REACTIONS (54)
  - Femur fracture [Not Recovered/Not Resolved]
  - Open reduction of fracture [Unknown]
  - Medical device removal [Not Recovered/Not Resolved]
  - Femur fracture [Not Recovered/Not Resolved]
  - Knee arthroplasty [Unknown]
  - Rotator cuff repair [Unknown]
  - Shoulder arthroplasty [Unknown]
  - Colonoscopy [Unknown]
  - Toxic encephalopathy [Unknown]
  - Renal failure [Unknown]
  - Iron deficiency anaemia [Unknown]
  - Hypertension [Unknown]
  - Rhabdomyolysis [Unknown]
  - Hypermagnesaemia [Unknown]
  - Low turnover osteopathy [Not Recovered/Not Resolved]
  - Device failure [Unknown]
  - Fracture nonunion [Unknown]
  - Internal fixation of fracture [Unknown]
  - Osteoporosis [Not Recovered/Not Resolved]
  - Multiple fractures [Not Recovered/Not Resolved]
  - Knee arthroplasty [Unknown]
  - Procedural haemorrhage [Unknown]
  - Anaemia postoperative [Unknown]
  - Mental status changes [Unknown]
  - Small intestinal obstruction [Unknown]
  - Adverse event [Unknown]
  - Tooth disorder [Unknown]
  - Head injury [Unknown]
  - Intentional drug misuse [Unknown]
  - Postmenopausal haemorrhage [Unknown]
  - Sleep apnoea syndrome [Unknown]
  - Mobility decreased [Recovering/Resolving]
  - Neuropathy peripheral [Unknown]
  - Diverticulum [Unknown]
  - Endodontic procedure [Unknown]
  - Osteoporosis [Unknown]
  - Diabetic neuropathy [Unknown]
  - Anal fissure [Not Recovered/Not Resolved]
  - Thrombosis [Unknown]
  - Bronchitis [Unknown]
  - Diverticulitis [Unknown]
  - Atrioventricular block first degree [Unknown]
  - Electrocardiogram T wave amplitude decreased [Unknown]
  - Cardiomegaly [Not Recovered/Not Resolved]
  - Osteoarthritis [Unknown]
  - Incisional drainage [Unknown]
  - Osteoarthritis [Unknown]
  - Osteopenia [Unknown]
  - Spinal osteoarthritis [Unknown]
  - Rheumatoid arthritis [Unknown]
  - Treatment failure [Unknown]
  - Back pain [Not Recovered/Not Resolved]
  - Muscle spasms [Unknown]
  - Constipation [Unknown]
